FAERS Safety Report 14397899 (Version 14)
Quarter: 2020Q1

REPORT INFORMATION
  Report Type: Report from Study
  Country: US (occurrence: US)
  Receive Date: 20180116
  Receipt Date: 20200325
  Transmission Date: 20200409
  Serious: Yes (Hospitalization)
  Sender: FDA-Public Use
  Company Number: US-ACTELION-A-US2014-109371

PATIENT
  Age: 72 Year
  Sex: Female
  Weight: 77.1 kg

DRUGS (10)
  1. OPSUMIT [Suspect]
     Active Substance: MACITENTAN
     Indication: PULMONARY ARTERIAL HYPERTENSION
     Dosage: 10 MG, QD
     Route: 048
     Dates: start: 20140421
  2. ADCIRCA [Concomitant]
     Active Substance: TADALAFIL
  3. WARFARIN [Concomitant]
     Active Substance: WARFARIN
  4. VENTAVIS [Suspect]
     Active Substance: ILOPROST
     Indication: PULMONARY ARTERIAL HYPERTENSION
     Dosage: UNK
     Route: 055
  5. VENTAVIS [Suspect]
     Active Substance: ILOPROST
     Dosage: 5 MCG, 6-9 X/DAY
     Route: 055
  6. OPSUMIT [Suspect]
     Active Substance: MACITENTAN
     Dosage: 10 MG, QD
     Route: 048
  7. ADEMPAS [Suspect]
     Active Substance: RIOCIGUAT
     Indication: PRODUCT USED FOR UNKNOWN INDICATION
     Dosage: UNK
     Route: 065
  8. VENTAVIS [Suspect]
     Active Substance: ILOPROST
     Dosage: 5 MCG, 6-9X/DAY
     Route: 055
     Dates: start: 20140818
  9. AMLODIPINE [Concomitant]
     Active Substance: AMLODIPINE BESYLATE
  10. BUMETANIDE. [Concomitant]
     Active Substance: BUMETANIDE

REACTIONS (24)
  - Cough [Unknown]
  - Epistaxis [Unknown]
  - Dyspnoea exertional [Unknown]
  - Fatigue [Unknown]
  - Drug ineffective [Unknown]
  - Dyspnoea [Unknown]
  - Pneumonia bacterial [Recovered/Resolved]
  - Gastric disorder [Unknown]
  - Depression [Unknown]
  - Upper respiratory tract infection [Recovered/Resolved]
  - Oedema peripheral [Unknown]
  - Nasopharyngitis [Unknown]
  - Pollakiuria [Unknown]
  - Malaise [Unknown]
  - Product dose omission [Unknown]
  - Fluid retention [Not Recovered/Not Resolved]
  - Infection [Unknown]
  - Pain [Unknown]
  - Chronic obstructive pulmonary disease [Unknown]
  - Diarrhoea [Unknown]
  - Somnolence [Unknown]
  - Gastrooesophageal reflux disease [Unknown]
  - Hospitalisation [Unknown]
  - Headache [Not Recovered/Not Resolved]

NARRATIVE: CASE EVENT DATE: 20191121
